FAERS Safety Report 16092944 (Version 2)
Quarter: 2019Q1

REPORT INFORMATION
  Report Type: Spontaneous
  Country: EG (occurrence: EG)
  Receive Date: 20190320
  Receipt Date: 20190322
  Transmission Date: 20190418
  Serious: Yes (Death, Other)
  Sender: FDA-Public Use
  Company Number: EG-B.I. PHARMACEUTICALS,INC./RIDGEFIELD-2019-BI-012082

PATIENT
  Age: 67 Year
  Sex: Female

DRUGS (3)
  1. CAPOTIN [Suspect]
     Active Substance: CAPTOPRIL
     Indication: PRODUCT USED FOR UNKNOWN INDICATION
     Route: 065
  2. ALDACTONE [Concomitant]
     Active Substance: SPIRONOLACTONE
     Indication: PRODUCT USED FOR UNKNOWN INDICATION
     Route: 065
  3. PRADAXA [Suspect]
     Active Substance: DABIGATRAN ETEXILATE MESYLATE
     Indication: PRODUCT USED FOR UNKNOWN INDICATION
     Route: 065

REACTIONS (6)
  - Vomiting [Unknown]
  - Acute kidney injury [Unknown]
  - Haemodialysis [None]
  - Uraemic encephalopathy [None]
  - Metabolic acidosis [None]
  - Haematemesis [Fatal]
